FAERS Safety Report 4520671-9 (Version None)
Quarter: 2004Q4

REPORT INFORMATION
  Report Type: 
  Country: None (occurrence: None)
  Receive Date: 20041207
  Receipt Date: 20041119
  Transmission Date: 20050328
  Serious: Yes (Hospitalization, Other)
  Sender: FDA-Public Use
  Company Number: JP-MERCK-0411USA03914

PATIENT
  Age: 67 Year
  Sex: Female

DRUGS (7)
  1. COZAAR [Suspect]
     Indication: HYPERTENSION
     Route: 048
  2. TEGRETOL [Suspect]
     Route: 048
     Dates: start: 20040601
  3. HYDANTOL [Suspect]
     Route: 048
  4. CARDENALIN [Concomitant]
     Indication: HYPERTENSION
     Route: 048
  5. ADALAT [Concomitant]
     Indication: HYPERTENSION
     Route: 048
  6. BAYASPIRIN [Concomitant]
     Route: 048
  7. THYRADIN-S [Concomitant]
     Indication: HYPOTHYROIDISM
     Route: 048

REACTIONS (6)
  - CHRONIC SINUSITIS [None]
  - DEPRESSION [None]
  - ECZEMA [None]
  - LACERATION [None]
  - STEVENS-JOHNSON SYNDROME [None]
  - SUICIDE ATTEMPT [None]
